FAERS Safety Report 25950560 (Version 3)
Quarter: 2025Q4

REPORT INFORMATION
  Report Type: Report from Study
  Country: EU (occurrence: EU)
  Receive Date: 20251023
  Receipt Date: 20251208
  Transmission Date: 20260118
  Serious: Yes (Death, Life-Threatening, Hospitalization)
  Sender: JOHNSON AND JOHNSON
  Company Number: EU-JNJFOC-20250732976

PATIENT
  Age: 68 Year
  Sex: Male

DRUGS (33)
  1. CILTACABTAGENE AUTOLEUCEL [Suspect]
     Active Substance: CILTACABTAGENE AUTOLEUCEL
     Indication: Plasma cell myeloma
     Dosage: 0.75 X10^6
     Route: 042
  2. CALCIUM CARBONATE [Concomitant]
     Active Substance: CALCIUM CARBONATE
     Indication: Plasma cell myeloma
     Dosage: 50/400 MILLIGRAM
     Route: 048
  3. PANTOPRAZOLE [Concomitant]
     Active Substance: PANTOPRAZOLE
     Indication: Abdominal pain upper
     Dosage: 20 TABLET
     Route: 048
  4. ACYCLOVIR [Concomitant]
     Active Substance: ACYCLOVIR
     Indication: Infection
     Route: 048
     Dates: start: 2024
  5. XARELTO [Concomitant]
     Active Substance: RIVAROXABAN
     Indication: Pulmonary embolism
     Route: 048
  6. DAPSONE [Concomitant]
     Active Substance: DAPSONE
     Indication: Rosacea
     Route: 048
     Dates: start: 20241104
  7. DARAPRIM [Concomitant]
     Active Substance: PYRIMETHAMINE
     Indication: Product used for unknown indication
  8. SOOLANTRA [Concomitant]
     Active Substance: IVERMECTIN
     Indication: Skin disorder prophylaxis
     Route: 048
     Dates: start: 20241021
  9. METROGEL [Concomitant]
     Active Substance: METRONIDAZOLE
     Indication: Product used for unknown indication
  10. CALCIUM CHLORIDE [Concomitant]
     Active Substance: CALCIUM CHLORIDE
     Indication: Product used for unknown indication
  11. DENOSUMAB [Concomitant]
     Active Substance: DENOSUMAB
     Indication: Product used for unknown indication
  12. HUMAN IMMUNOGLOBULIN G [Concomitant]
     Active Substance: HUMAN IMMUNOGLOBULIN G
     Indication: Leukopenia
     Dates: start: 202412
  13. ENOXAPARIN SODIUM [Concomitant]
     Active Substance: ENOXAPARIN SODIUM
     Indication: Thrombosis
     Route: 058
     Dates: start: 20241021, end: 20241104
  14. ACETAMINOPHEN [Concomitant]
     Active Substance: ACETAMINOPHEN
     Indication: Pyrexia
     Route: 048
     Dates: start: 20241021, end: 20241028
  15. LOPERAMIDA ATHENA [Concomitant]
     Indication: Diarrhoea
     Route: 048
     Dates: start: 20241021, end: 20241021
  16. METOCLOPRAMIDA ACCORD [Concomitant]
     Indication: Plasma cell myeloma
     Route: 042
     Dates: start: 20241022
  17. SODIUM PICOSULFATE [Concomitant]
     Active Substance: SODIUM PICOSULFATE
     Indication: Constipation
     Dates: start: 20241021, end: 20241104
  18. MEPERIDINE [Concomitant]
     Active Substance: MEPERIDINE
     Indication: Pain
     Dates: start: 20241021, end: 20241104
  19. METAMIZOLE [Concomitant]
     Active Substance: METAMIZOLE
     Indication: Pain
     Route: 048
     Dates: start: 20241027, end: 20241027
  20. SOOLANTRA [Concomitant]
     Active Substance: IVERMECTIN
     Indication: Rosacea
     Route: 062
     Dates: start: 20241104
  21. METROGEL [Concomitant]
     Active Substance: METRONIDAZOLE
     Indication: Rosacea
     Route: 062
     Dates: start: 20241104
  22. METROGEL [Concomitant]
     Active Substance: METRONIDAZOLE
     Indication: Rosacea
     Dosage: 0.75
     Route: 062
     Dates: start: 20241104
  23. CHLORIDE ION [Concomitant]
     Active Substance: CHLORIDE ION
     Indication: Plasma cell myeloma
     Route: 048
     Dates: start: 20241104
  24. PIPERACILLIN SODIUM\TAZOBACTAM SODIUM [Concomitant]
     Active Substance: PIPERACILLIN SODIUM\TAZOBACTAM SODIUM
     Indication: Cytokine release syndrome
     Dosage: 4/0.5
     Dates: start: 20241022, end: 20241026
  25. MEROPENEM [Concomitant]
     Active Substance: MEROPENEM
     Indication: Cytokine release syndrome
     Route: 042
     Dates: start: 20241026, end: 20241101
  26. TOCILIZUMAB [Concomitant]
     Active Substance: TOCILIZUMAB
     Indication: Product used for unknown indication
     Route: 042
     Dates: start: 20241028, end: 20241028
  27. FILGRASTIM [Concomitant]
     Active Substance: FILGRASTIM
     Indication: Product used for unknown indication
     Route: 058
     Dates: start: 20241104, end: 20241104
  28. CIPROFLOXACIN [Concomitant]
     Active Substance: CIPROFLOXACIN
     Indication: Salmonellosis
     Route: 048
     Dates: start: 202412, end: 202412
  29. CIPROFLOXACIN [Concomitant]
     Active Substance: CIPROFLOXACIN
     Route: 048
     Dates: start: 202412, end: 202412
  30. DENOSUMAB [Concomitant]
     Active Substance: DENOSUMAB
     Indication: Plasma cell myeloma
     Route: 058
     Dates: start: 2024
  31. AMPICILLIN [Concomitant]
     Active Substance: AMPICILLIN
     Indication: Salmonellosis
  32. SULBACTAM [Concomitant]
     Active Substance: SULBACTAM
     Indication: Salmonellosis
  33. PLATELETS [Concomitant]
     Active Substance: HUMAN PLATELET, ALLOGENIC
     Indication: Thrombocytopenia
     Dates: start: 202412, end: 202412

REACTIONS (2)
  - Neurotoxicity [Fatal]
  - Guillain-Barre syndrome [Fatal]

NARRATIVE: CASE EVENT DATE: 20250712
